FAERS Safety Report 16346507 (Version 1)
Quarter: 2019Q2

REPORT INFORMATION
  Report Type: Spontaneous
  Country: US (occurrence: US)
  Receive Date: 20190523
  Receipt Date: 20190523
  Transmission Date: 20190711
  Serious: No
  Sender: FDA-Public Use
  Company Number: US-BAUSCH-BL-2019-013728

PATIENT
  Age: 75 Year
  Sex: Female
  Weight: 60.84 kg

DRUGS (1)
  1. LOTEMAX [Suspect]
     Active Substance: LOTEPREDNOL ETABONATE
     Indication: OCULAR HYPERAEMIA
     Dosage: ONCE IN BOTH EYES
     Route: 047
     Dates: start: 20190505, end: 20190506

REACTIONS (6)
  - Visual impairment [Recovered/Resolved]
  - Malaise [Unknown]
  - Eye disorder [Unknown]
  - Vision blurred [Not Recovered/Not Resolved]
  - Abdominal discomfort [Unknown]
  - Eye discharge [Unknown]

NARRATIVE: CASE EVENT DATE: 20190505
